FAERS Safety Report 20049925 (Version 1)
Quarter: 2021Q4

REPORT INFORMATION
  Report Type: Spontaneous
  Country: US (occurrence: US)
  Receive Date: 20211109
  Receipt Date: 20211109
  Transmission Date: 20220303
  Serious: Yes (Other)
  Sender: FDA-Public Use
  Company Number: US-SAOL THERAPEUTICS-2021SAO00375

PATIENT
  Age: 22 Year
  Sex: Male
  Weight: 44.444 kg

DRUGS (1)
  1. LIORESAL [Suspect]
     Active Substance: BACLOFEN
     Indication: Muscle spasticity
     Dosage: 560 ???G, \DAY
     Route: 037

REACTIONS (2)
  - Incision site inflammation [Recovered/Resolved]
  - Implant site erosion [Recovered/Resolved]

NARRATIVE: CASE EVENT DATE: 20211026
